FAERS Safety Report 4810792-5 (Version None)
Quarter: 2005Q4

REPORT INFORMATION
  Report Type: 
  Country: None (occurrence: None)
  Receive Date: 20051024
  Receipt Date: 20051012
  Transmission Date: 20060501
  Serious: Yes (Other)
  Sender: FDA-Public Use
  Company Number: 2005141067

PATIENT
  Age: 7 Year
  Sex: Female
  Weight: 29.4838 kg

DRUGS (1)
  1. BENADRYL [Suspect]
     Indication: ABNORMAL BEHAVIOUR
     Dosage: TWO DOSES, TWICE , ORAL
     Route: 048
     Dates: start: 20051011, end: 20051011

REACTIONS (3)
  - CHEST PAIN [None]
  - CHILLS [None]
  - PYREXIA [None]
